FAERS Safety Report 9014843 (Version 7)
Quarter: 2013Q4

REPORT INFORMATION
  Report Type: Spontaneous
  Country: US (occurrence: US)
  Receive Date: 20130116
  Receipt Date: 20131118
  Transmission Date: 20140711
  Serious: Yes (Hospitalization)
  Sender: FDA-Public Use
  Company Number: US-BIOGENIDEC-2013BI002726

PATIENT
  Age: 51 Year
  Sex: Male
  Weight: 114 kg

DRUGS (15)
  1. AVONEX [Suspect]
     Indication: MULTIPLE SCLEROSIS
     Route: 030
     Dates: start: 20020223, end: 20080829
  2. AVONEX [Suspect]
     Indication: MULTIPLE SCLEROSIS
     Route: 030
     Dates: start: 20081031, end: 20090130
  3. AVONEX [Suspect]
     Indication: MULTIPLE SCLEROSIS
     Route: 030
     Dates: start: 20100711
  4. AVONEX [Suspect]
     Indication: MULTIPLE SCLEROSIS
     Route: 030
     Dates: start: 20121226
  5. AMLODIPINE BESYLATE [Concomitant]
     Route: 048
  6. BYSTOLIC [Concomitant]
     Route: 048
  7. IBUPROFEN [Concomitant]
     Route: 048
  8. LANTUS [Concomitant]
     Dosage: DOSE UNIT:100
     Route: 058
  9. ASPIRIN CHILD [Concomitant]
     Route: 048
  10. BUPROPION [Concomitant]
     Route: 048
  11. FLOMAX [Concomitant]
     Route: 048
  12. GLIPIZIDE [Concomitant]
     Route: 048
  13. LISINOPRIL [Concomitant]
     Route: 048
  14. METFORMIN HCL [Concomitant]
     Route: 048
  15. SIMVASTATIN [Concomitant]
     Route: 048

REACTIONS (17)
  - Dysstasia [Not Recovered/Not Resolved]
  - Pneumonia [Recovered/Resolved]
  - Muscle atrophy [Unknown]
  - Essential hypertension [Unknown]
  - Gait disturbance [Unknown]
  - Type 2 diabetes mellitus [Unknown]
  - Diabetes mellitus [Unknown]
  - Arthritis [Unknown]
  - Diplopia [Recovered/Resolved]
  - Colon cancer stage I [Recovered/Resolved]
  - Multiple sclerosis relapse [Recovered/Resolved]
  - Paranasal sinus mucosal hypertrophy [Recovered/Resolved]
  - Paranasal sinus hypersecretion [Recovered/Resolved]
  - Fall [Recovered/Resolved]
  - Haematochezia [Not Recovered/Not Resolved]
  - Dysuria [Not Recovered/Not Resolved]
  - Prostatomegaly [Not Recovered/Not Resolved]
